FAERS Safety Report 12129201 (Version 2)
Quarter: 2017Q1

REPORT INFORMATION
  Report Type: Other
  Country: US (occurrence: US)
  Receive Date: 20160229
  Receipt Date: 20170212
  Transmission Date: 20170428
  Serious: No
  Sender: FDA-Public Use
  Company Number: US-ACORDA-ACO_120100_2015

PATIENT
  Age: 70 Year
  Sex: Female

DRUGS (1)
  1. AMPYRA [Suspect]
     Active Substance: DALFAMPRIDINE
     Indication: PRODUCT USED FOR UNKNOWN INDICATION
     Dosage: 10 MG, Q 12 HRS
     Route: 048
     Dates: start: 20150814, end: 20160310

REACTIONS (7)
  - Nasal congestion [Unknown]
  - Paranasal sinus discomfort [Unknown]
  - Pain [Unknown]
  - Depression [Unknown]
  - Fatigue [Unknown]
  - Anxiety [Unknown]
  - Dyspnoea [Unknown]

NARRATIVE: CASE EVENT DATE: 201508
